FAERS Safety Report 5933152-2 (Version None)
Quarter: 2008Q4

REPORT INFORMATION
  Report Type: 
  Country: None (occurrence: None)
  Receive Date: 20081023
  Receipt Date: 20060425
  Transmission Date: 20090506
  Serious: Yes (Hospitalization, Other)
  Sender: FDA-Public Use
  Company Number: 2006AL001988

PATIENT
  Age: 50 Year
  Sex: Female

DRUGS (6)
  1. IBUPROFEN [Suspect]
     Indication: OSTEOARTHRITIS
     Dosage: TID;PO
     Route: 048
     Dates: start: 20050203, end: 20060323
  2. GABAPENTIN [Suspect]
     Dosage: TID
     Dates: start: 20030606
  3. XYLOPROCT [Concomitant]
  4. LEVOTHYROXINE SODIUM [Concomitant]
  5. AMOXICILLIN [Concomitant]
  6. VITAMIN B COMPOUND [Concomitant]

REACTIONS (2)
  - GASTROINTESTINAL HAEMORRHAGE [None]
  - HAEMOGLOBIN DECREASED [None]
